FAERS Safety Report 15944682 (Version 5)
Quarter: 2021Q2

REPORT INFORMATION
  Report Type: Report from Study
  Country: US (occurrence: US)
  Receive Date: 20190211
  Receipt Date: 20210429
  Transmission Date: 20210716
  Serious: Yes (Death, Hospitalization, Other)
  Sender: FDA-Public Use
  Company Number: US-ACADIA PHARMACEUTICALS INC.-ACA-2018-011059

PATIENT
  Sex: Male

DRUGS (3)
  1. NUPLAZID [Suspect]
     Active Substance: PIMAVANSERIN TARTRATE
     Indication: PARKINSON^S DISEASE
     Dosage: 34 MG, QD
     Route: 048
     Dates: start: 201711
  2. NORTHERA [Suspect]
     Active Substance: DROXIDOPA
     Indication: ORTHOSTATIC HYPOTENSION
     Dosage: 600 MG, TID
     Route: 065
     Dates: start: 201702
  3. NUPLAZID [Suspect]
     Active Substance: PIMAVANSERIN TARTRATE
     Indication: PARKINSON^S DISEASE
     Dosage: 34 MILLIGRAM, QD
     Route: 048
     Dates: end: 202102

REACTIONS (9)
  - Fall [Unknown]
  - Nonspecific reaction [Unknown]
  - Feeling abnormal [Unknown]
  - COVID-19 [Recovered/Resolved]
  - Hip fracture [Unknown]
  - Product dose omission issue [Unknown]
  - Malaise [Unknown]
  - Hypotension [Unknown]
  - Dizziness [Unknown]
